FAERS Safety Report 25946544 (Version 1)
Quarter: 2025Q4

REPORT INFORMATION
  Report Type: Spontaneous
  Country: US (occurrence: US)
  Receive Date: 20251022
  Receipt Date: 20251022
  Transmission Date: 20260117
  Serious: No
  Sender: PACIRA
  Company Number: US-ORG100016242-2025000291

PATIENT
  Age: 59 Year
  Sex: Female
  Weight: 94.35 kg

DRUGS (1)
  1. ZILRETTA [Suspect]
     Active Substance: TRIAMCINOLONE ACETONIDE
     Indication: Osteoarthritis
     Dosage: LEFT KNEE
     Route: 050
     Dates: start: 20250623, end: 20250623

REACTIONS (10)
  - Drug ineffective [Unknown]
  - Gait disturbance [Unknown]
  - Weight bearing difficulty [Not Recovered/Not Resolved]
  - Liquid product physical issue [Unknown]
  - Liquid product physical issue [Unknown]
  - Product colour issue [Unknown]
  - Patient dissatisfaction with treatment [Unknown]
  - Emotional distress [Unknown]
  - Inappropriate schedule of product administration [Unknown]
  - Injection site reaction [Not Recovered/Not Resolved]
